FAERS Safety Report 9433478 (Version 4)
Quarter: 2014Q4

REPORT INFORMATION
  Report Type: Spontaneous
  Country: None (occurrence: GB)
  Receive Date: 20130731
  Receipt Date: 20141121
  Transmission Date: 20150529
  Serious: Yes (Hospitalization, Other)
  Sender: FDA-Public Use
  Company Number: GB-ALLERGAN-1311242US

PATIENT
  Sex: Female

DRUGS (3)
  1. BOTOX [Suspect]
     Active Substance: ONABOTULINUMTOXINA
     Indication: SKIN WRINKLING
     Dosage: UNK, SINGLE
     Dates: start: 20130722, end: 20130722
  2. VENTOLIN [Concomitant]
     Active Substance: ALBUTEROL SULFATE
     Indication: ASTHMA
  3. BOTOX [Suspect]
     Active Substance: ONABOTULINUMTOXINA
     Indication: SKIN WRINKLING
     Dosage: UNK, SINGLE
     Dates: start: 20130703, end: 20130703

REACTIONS (18)
  - Anaphylactic shock [Unknown]
  - Skin warm [Unknown]
  - Off label use [Unknown]
  - Wheezing [Unknown]
  - Drug ineffective [Unknown]
  - Blister [Unknown]
  - Eye swelling [Not Recovered/Not Resolved]
  - Facial paresis [Unknown]
  - Injection site swelling [Not Recovered/Not Resolved]
  - Dysphagia [Unknown]
  - Neck pain [Not Recovered/Not Resolved]
  - Lid sulcus deepened [Unknown]
  - Tachycardia [Unknown]
  - Erythema [Unknown]
  - Headache [Unknown]
  - Injection site pain [Unknown]
  - VIIth nerve paralysis [Not Recovered/Not Resolved]
  - Lymphadenopathy [Unknown]

NARRATIVE: CASE EVENT DATE: 201307
